FAERS Safety Report 20980181 (Version 1)
Quarter: 2022Q2

REPORT INFORMATION
  Report Type: Spontaneous
  Country: CA (occurrence: CA)
  Receive Date: 20220620
  Receipt Date: 20220620
  Transmission Date: 20220721
  Serious: Yes (Other)
  Sender: FDA-Public Use
  Company Number: CA-SA-SAC20220616001654

PATIENT

DRUGS (1)
  1. AUBAGIO [Suspect]
     Active Substance: TERIFLUNOMIDE
     Dosage: UNK

REACTIONS (4)
  - Optic nerve injury [Unknown]
  - Depression [Unknown]
  - Central nervous system lesion [Unknown]
  - Hypoaesthesia [Unknown]
